FAERS Safety Report 10194997 (Version 1)
Quarter: 2014Q2

REPORT INFORMATION
  Report Type: Spontaneous
  Country: US (occurrence: US)
  Receive Date: 20140526
  Receipt Date: 20140526
  Transmission Date: 20141212
  Serious: Yes (Other)
  Sender: FDA-Public Use
  Company Number: US-PFIZER INC-2014143827

PATIENT
  Age: 51 Year
  Sex: Female
  Weight: 69.8 kg

DRUGS (6)
  1. CHANTIX [Suspect]
     Indication: SMOKING CESSATION THERAPY
     Dosage: 0.5 MG, 1X/DAY
     Route: 048
     Dates: start: 2014, end: 2014
  2. CHANTIX [Suspect]
     Dosage: 1 MG, 1X/DAY
     Route: 048
     Dates: start: 2014, end: 2014
  3. CHANTIX [Suspect]
     Dosage: 1 MG, 2X/DAY
     Route: 048
     Dates: start: 2014, end: 2014
  4. CHANTIX [Suspect]
     Dosage: UNK
     Route: 048
     Dates: start: 2014, end: 2014
  5. CHANTIX [Suspect]
     Dosage: UNK
     Route: 048
     Dates: start: 2014
  6. OXYCONTIN [Concomitant]
     Indication: PAIN
     Dosage: UNK, AS NEEDED

REACTIONS (7)
  - Brain neoplasm malignant [Unknown]
  - Hallucination [Unknown]
  - Dizziness [Unknown]
  - Headache [Unknown]
  - Nightmare [Unknown]
  - Night sweats [Unknown]
  - White blood cell count decreased [Recovering/Resolving]
